FAERS Safety Report 10336533 (Version 1)
Quarter: 2014Q3

REPORT INFORMATION
  Report Type: Spontaneous
  Country: US (occurrence: US)
  Receive Date: 20140723
  Receipt Date: 20140723
  Transmission Date: 20150326
  Serious: No
  Sender: FDA-Public Use
  Company Number: US-BRISTOL-MYERS SQUIBB COMPANY-20766820

PATIENT
  Age: 49 Year
  Sex: Female

DRUGS (8)
  1. TRAMADOL [Concomitant]
     Active Substance: TRAMADOL
     Indication: PAIN
  2. PLAQUENIL [Concomitant]
     Active Substance: HYDROXYCHLOROQUINE SULFATE
     Indication: MYALGIA
  3. METOPROLOL [Concomitant]
     Active Substance: METOPROLOL
     Indication: VENTRICULAR EXTRASYSTOLES
  4. COUMADIN [Suspect]
     Active Substance: WARFARIN SODIUM
     Indication: ANTIPHOSPHOLIPID SYNDROME
     Dosage: 5MG/DAY
     Route: 065
  5. LEVOTHYROXINE [Concomitant]
     Active Substance: LEVOTHYROXINE
     Indication: THYROIDECTOMY
  6. HUMIRA [Suspect]
     Active Substance: ADALIMUMAB
     Indication: ANKYLOSING SPONDYLITIS
     Dosage: INJECTION IN PRE-FILLED PEN
     Route: 065
     Dates: start: 20140222
  7. PEPCID [Concomitant]
     Active Substance: FAMOTIDINE
     Indication: ULCER
  8. METOPROLOL [Concomitant]
     Active Substance: METOPROLOL
     Indication: VENTRICULAR TACHYCARDIA

REACTIONS (8)
  - Dyspnoea [Unknown]
  - Malaise [Unknown]
  - Feeling cold [Unknown]
  - Pain [Unknown]
  - Onychomycosis [Unknown]
  - Arthralgia [Unknown]
  - Nail discolouration [Unknown]
  - Myalgia [Unknown]

NARRATIVE: CASE EVENT DATE: 201403
